FAERS Safety Report 5348906-3 (Version None)
Quarter: 2007Q2

REPORT INFORMATION
  Report Type: 
  Country: None (occurrence: None)
  Receive Date: 20070605
  Receipt Date: 20070525
  Transmission Date: 20071010
  Serious: Yes (Other)
  Sender: FDA-Public Use
  Company Number: 070530-0000557

PATIENT
  Sex: Male

DRUGS (1)
  1. DESOXYN [Suspect]
     Indication: DRUG USE FOR UNKNOWN INDICATION
     Dosage: INH
     Route: 055

REACTIONS (3)
  - AMYOTROPHIC LATERAL SCLEROSIS [None]
  - DRUG ABUSER [None]
  - INCORRECT ROUTE OF DRUG ADMINISTRATION [None]
